FAERS Safety Report 11584703 (Version 4)
Quarter: 2016Q3

REPORT INFORMATION
  Report Type: Spontaneous
  Country: BR (occurrence: BR)
  Receive Date: 20151001
  Receipt Date: 20160930
  Transmission Date: 20161109
  Serious: Yes (Disabling)
  Sender: FDA-Public Use
  Company Number: BR-PFIZER INC-2015329512

PATIENT
  Sex: Female

DRUGS (7)
  1. PANTOZOL [Suspect]
     Active Substance: PANTOPRAZOLE SODIUM
     Dosage: 40 MG, UNK
     Route: 048
     Dates: start: 201501
  2. GAMALINE [Concomitant]
     Dosage: UNK
  3. MALTOFER FOL [Suspect]
     Active Substance: FOLIC ACID\IRON POLYMALTOSE
     Indication: ANAEMIA
     Dosage: 100 MG, QD
     Route: 048
     Dates: start: 20150910
  4. DEVERA [Suspect]
     Active Substance: CHOLECALCIFEROL
     Dosage: UNK
     Route: 048
     Dates: start: 201504
  5. SYMBICORT [Concomitant]
     Active Substance: BUDESONIDE\FORMOTEROL FUMARATE DIHYDRATE
     Dosage: UNK
  6. AEROLIN [Concomitant]
     Active Substance: ALBUTEROL
     Dosage: UNK
  7. STEZZA [Concomitant]
     Dosage: UNK

REACTIONS (5)
  - Activities of daily living impaired [Recovered/Resolved]
  - Faeces discoloured [Not Recovered/Not Resolved]
  - Gastrointestinal infection [Unknown]
  - Headache [Not Recovered/Not Resolved]
  - Flatulence [Unknown]

NARRATIVE: CASE EVENT DATE: 201509
